FAERS Safety Report 7407963-0 (Version None)
Quarter: 2011Q2

REPORT INFORMATION
  Report Type: 
  Country: None (occurrence: None)
  Receive Date: 20110412
  Receipt Date: 20110406
  Transmission Date: 20111010
  Serious: No
  Sender: FDA-Public Use
  Company Number: US-PFIZER INC-2011076713

PATIENT
  Sex: Female
  Weight: 61.224 kg

DRUGS (6)
  1. TRAZODONE [Concomitant]
     Dosage: UNK
  2. ALAVERT [Suspect]
     Indication: HYPERSENSITIVITY
     Dosage: UNK
     Route: 048
     Dates: start: 20100101
  3. ACETYLSALICYLIC ACID [Concomitant]
     Dosage: UNK
  4. SERTRALINE [Concomitant]
     Dosage: UNK
  5. AMLODIPINE [Concomitant]
     Dosage: UNK
  6. TRIAMTERENE [Concomitant]
     Dosage: UNK

REACTIONS (1)
  - FEELING ABNORMAL [None]
